FAERS Safety Report 7597923-1 (Version None)
Quarter: 2011Q3

REPORT INFORMATION
  Report Type: 
  Country: None (occurrence: None)
  Receive Date: 20110708
  Receipt Date: 20110628
  Transmission Date: 20111222
  Serious: Yes (Hospitalization)
  Sender: FDA-Public Use
  Company Number: NL-SANOFI-AVENTIS-2010SA054428

PATIENT
  Age: 70 Year
  Sex: Male

DRUGS (7)
  1. DEPAKENE [Concomitant]
     Indication: TREMOR
     Dates: start: 19920101
  2. HYDROCHLOROTHIAZID [Concomitant]
     Indication: HYPERTENSION
     Route: 048
     Dates: start: 20060101
  3. CANDESARTAN CILEXETIL [Concomitant]
     Indication: HYPERTENSION
     Route: 048
     Dates: start: 20060101
  4. LEUPROLIDE ACETATE [Suspect]
     Indication: PROSTATE CANCER
     Route: 065
     Dates: start: 20071001, end: 20100114
  5. PROPRANOLOL HCL [Concomitant]
     Indication: HYPERTENSION
     Route: 048
     Dates: start: 20060101
  6. OSCAL [Concomitant]
     Indication: CEREBROVASCULAR ACCIDENT
     Dates: start: 20010101
  7. PRAVASTATIN [Concomitant]
     Dates: start: 20060101

REACTIONS (2)
  - CONTUSION [None]
  - SYNCOPE [None]
